FAERS Safety Report 13753396 (Version 5)
Quarter: 2017Q4

REPORT INFORMATION
  Report Type: Spontaneous
  Country: US (occurrence: US)
  Receive Date: 20170713
  Receipt Date: 20171229
  Transmission Date: 20180320
  Serious: Yes (Hospitalization, Other)
  Sender: FDA-Public Use
  Company Number: US-JAZZ-2017-US-009067

PATIENT
  Age: 45 Year
  Sex: Male

DRUGS (3)
  1. XYREM [Suspect]
     Active Substance: SODIUM OXYBATE
     Indication: NARCOLEPSY
     Dosage: 2.25G, BID
     Route: 048
     Dates: start: 201512, end: 201601
  2. XYREM [Suspect]
     Active Substance: SODIUM OXYBATE
     Indication: CATAPLEXY
     Dosage: DOSE ADJUSTMENT
     Route: 048
     Dates: start: 201601, end: 201601
  3. XYREM [Suspect]
     Active Substance: SODIUM OXYBATE
     Dosage: 4.5G, BID
     Route: 048
     Dates: start: 2016, end: 201707

REACTIONS (7)
  - Injury [Unknown]
  - Speech disorder [Unknown]
  - Obsessive-compulsive disorder [Recovering/Resolving]
  - Depression [Recovering/Resolving]
  - Meningioma [Unknown]
  - Seizure [Unknown]
  - B-cell lymphoma [Unknown]

NARRATIVE: CASE EVENT DATE: 20170711
